FAERS Safety Report 9348833 (Version 2)
Quarter: 2013Q3

REPORT INFORMATION
  Report Type: Spontaneous
  Country: US (occurrence: US)
  Receive Date: 20130614
  Receipt Date: 20130710
  Transmission Date: 20140515
  Serious: Yes (Other)
  Sender: FDA-Public Use
  Company Number: US-PFIZER INC-2013179660

PATIENT
  Age: 47 Year
  Sex: Female
  Weight: 118 kg

DRUGS (2)
  1. LYRICA [Suspect]
     Indication: RHEUMATOID ARTHRITIS
     Dosage: 100 MG, 2X/DAY
     Route: 048
  2. LYRICA [Suspect]
     Indication: ARTHRALGIA

REACTIONS (6)
  - Off label use [Not Recovered/Not Resolved]
  - Uterine disorder [Unknown]
  - Menopause [Unknown]
  - Amnesia [Not Recovered/Not Resolved]
  - Activities of daily living impaired [Unknown]
  - Drug ineffective [Unknown]
